FAERS Safety Report 6256244-X (Version None)
Quarter: 2009Q3

REPORT INFORMATION
  Report Type: 
  Country: None (occurrence: None)
  Receive Date: 20090706
  Receipt Date: 20090421
  Transmission Date: 20100115
  Serious: No
  Sender: FDA-Public Use
  Company Number: A0779922A

PATIENT
  Age: 67 Year
  Sex: Female

DRUGS (1)
  1. ADVAIR HFA [Suspect]
     Indication: DRUG USE FOR UNKNOWN INDICATION
     Dosage: 1PUFF TWICE PER DAY
     Route: 055

REACTIONS (3)
  - DYSPNOEA [None]
  - FEELING HOT [None]
  - MALAISE [None]
